FAERS Safety Report 4876525-1 (Version None)
Quarter: 2006Q1

REPORT INFORMATION
  Report Type: 
  Country: None (occurrence: None)
  Receive Date: 20060110
  Receipt Date: 20051109
  Transmission Date: 20060701
  Serious: Yes (Other)
  Sender: FDA-Public Use
  Company Number: IE-GLAXOSMITHKLINE-B0400150A

PATIENT
  Age: 44 Year
  Sex: Female
  Weight: 89.2 kg

DRUGS (4)
  1. AVANDIA [Suspect]
     Dosage: 4MG PER DAY
     Route: 048
     Dates: start: 20041109, end: 20051101
  2. METFORMIN [Concomitant]
     Dosage: 850MG TWICE PER DAY
     Dates: start: 20040601
  3. LESCOL XL [Concomitant]
     Dosage: 80MG PER DAY
     Dates: start: 20040601
  4. TRITACE [Concomitant]
     Dosage: 2.5MG PER DAY

REACTIONS (2)
  - HYPERCHOLESTEROLAEMIA [None]
  - HYPERTRIGLYCERIDAEMIA [None]
